FAERS Safety Report 5755322-9 (Version None)
Quarter: 2008Q2

REPORT INFORMATION
  Report Type: 
  Country: None (occurrence: None)
  Receive Date: 20080529
  Receipt Date: 20080529
  Transmission Date: 20081010
  Serious: Yes (Hospitalization)
  Sender: FDA-Public Use
  Company Number: None

PATIENT
  Sex: Female
  Weight: 82.8 kg

DRUGS (2)
  1. ETOPOSIDE [Suspect]
     Indication: ACUTE MYELOID LEUKAEMIA
     Dosage: 220 MG Q8H IV
     Route: 042
     Dates: start: 20080416, end: 20080419
  2. CYTARABINE [Suspect]
     Indication: ACUTE MYELOID LEUKAEMIA
     Dosage: 3.9 G Q12H IV
     Route: 042
     Dates: start: 20080416, end: 20080419

REACTIONS (3)
  - CATHETER THROMBOSIS [None]
  - DEEP VEIN THROMBOSIS [None]
  - NECK PAIN [None]
